FAERS Safety Report 7470963-9 (Version None)
Quarter: 2011Q2

REPORT INFORMATION
  Report Type: 
  Country: None (occurrence: None)
  Receive Date: 20110510
  Receipt Date: 20110422
  Transmission Date: 20111010
  Serious: No
  Sender: FDA-Public Use
  Company Number: US-B.I. PHARMACEUTICALS,INC./RIDGEFIELD-2011-BP-07553BP

PATIENT
  Sex: Female

DRUGS (10)
  1. DIGOXIN [Concomitant]
  2. LUCENTIS [Concomitant]
  3. SPIRIVA [Suspect]
     Indication: CHRONIC OBSTRUCTIVE PULMONARY DISEASE
     Dosage: 36 MCG
     Route: 055
     Dates: start: 20110101
  4. LUTEIN [Concomitant]
  5. LEVOXYL [Concomitant]
  6. COUMADIN [Concomitant]
  7. VIT D [Concomitant]
  8. TRIAMTERENE AND HYDROCHLOROTHIAZIDE [Concomitant]
  9. RESTASIS [Concomitant]
  10. ASPIRIN [Concomitant]

REACTIONS (8)
  - URTICARIA [None]
  - DRUG INEFFECTIVE [None]
  - URINARY INCONTINENCE [None]
  - DYSPNOEA [None]
  - VISION BLURRED [None]
  - PRURITUS [None]
  - DRY MOUTH [None]
  - RASH [None]
